FAERS Safety Report 24340660 (Version 3)
Quarter: 2025Q3

REPORT INFORMATION
  Report Type: Report from Study
  Country: CA (occurrence: CA)
  Receive Date: 20240919
  Receipt Date: 20250722
  Transmission Date: 20251021
  Serious: Yes (Hospitalization)
  Sender: NOVARTIS
  Company Number: CA-002147023-NVSC2024CA148048

PATIENT
  Age: 76 Year
  Sex: Female

DRUGS (2)
  1. KISQALI [Suspect]
     Active Substance: RIBOCICLIB SUCCINATE
     Indication: Breast cancer metastatic
     Route: 048
     Dates: start: 20240607
  2. KISQALI [Suspect]
     Active Substance: RIBOCICLIB SUCCINATE
     Dosage: 400 MG, QD, FOR 21 CONSECUTIVE DAYS FOLLOWED BY 7 DAY BREAK
     Route: 048

REACTIONS (10)
  - Syncope [Unknown]
  - Fall [Unknown]
  - Loss of consciousness [Unknown]
  - Dizziness [Unknown]
  - Alopecia [Unknown]
  - Joint swelling [Unknown]
  - Finger deformity [Unknown]
  - Fatigue [Unknown]
  - Hepatic enzyme increased [Recovered/Resolved]
  - Dry eye [Unknown]
